FAERS Safety Report 4964906-7 (Version None)
Quarter: 2006Q2

REPORT INFORMATION
  Report Type: 
  Country: None (occurrence: None)
  Receive Date: 20060406
  Receipt Date: 20060329
  Transmission Date: 20061013
  Serious: Yes (Other)
  Sender: FDA-Public Use
  Company Number: US-JNJFOC-20060307552

PATIENT
  Sex: Female

DRUGS (3)
  1. TYLENOL (CAPLET) [Suspect]
  2. TYLENOL (CAPLET) [Suspect]
     Indication: DRUG USE FOR UNKNOWN INDICATION
     Dosage: ^MORE THAN OTHER PEOPLE AND ON A SOMEWHAT DAILY BASIS FOR A LONG TIME^
  3. TYLENOL (CAPLET) [Suspect]
     Indication: DRUG USE FOR UNKNOWN INDICATION
     Dosage: ^ONCE IN A GREAT WHILE^

REACTIONS (5)
  - ABDOMINAL DISTENSION [None]
  - HAEMATOCHEZIA [None]
  - HEPATOCELLULAR DAMAGE [None]
  - INTESTINAL HAEMORRHAGE [None]
  - STOMACH DISCOMFORT [None]
